FAERS Safety Report 16360300 (Version 1)
Quarter: 2019Q2

REPORT INFORMATION
  Report Type: Spontaneous
  Country: CN (occurrence: CN)
  Receive Date: 20190528
  Receipt Date: 20190528
  Transmission Date: 20190711
  Serious: Yes (Other)
  Sender: FDA-Public Use
  Company Number: CN-ROCHE-2317701

PATIENT
  Age: 34 Year
  Sex: Female

DRUGS (2)
  1. CAPECITABINE. [Suspect]
     Active Substance: CAPECITABINE
     Indication: COLON CANCER
     Route: 048
  2. OXALIPLATIN. [Concomitant]
     Active Substance: OXALIPLATIN
     Indication: COLON CANCER

REACTIONS (5)
  - Appendicitis noninfective [Unknown]
  - Haemoglobin decreased [Unknown]
  - Occult blood positive [Unknown]
  - Haematochezia [Unknown]
  - Dizziness [Unknown]

NARRATIVE: CASE EVENT DATE: 20180104
